FAERS Safety Report 5504179-X (Version None)
Quarter: 2007Q4

REPORT INFORMATION
  Report Type: 
  Country: None (occurrence: None)
  Receive Date: 20071101
  Receipt Date: 20071022
  Transmission Date: 20080405
  Serious: Yes (Death, Congenital Anomaly)
  Sender: FDA-Public Use
  Company Number: B0482726B

PATIENT
  Sex: Male
  Weight: 64 kg

DRUGS (4)
  1. DEROXAT [Suspect]
     Indication: ANXIETY DISORDER
     Dosage: 20MG PER DAY
     Dates: start: 20070104, end: 20070203
  2. SPASFON [Concomitant]
     Dosage: 6TAB PER DAY
     Dates: start: 20070509
  3. MAGNE B6 [Concomitant]
     Dosage: 6TAB PER DAY
     Dates: start: 20070509
  4. TARDYFERON B9 [Concomitant]
     Dosage: 1UNIT PER DAY
     Dates: start: 20070509

REACTIONS (6)
  - ABORTION INDUCED [None]
  - CONGENITAL AORTIC ANOMALY [None]
  - DRUG EXPOSURE DURING PREGNANCY [None]
  - FALLOT'S TETRALOGY [None]
  - PULMONARY ARTERY ATRESIA [None]
  - VENTRICULAR SEPTAL DEFECT [None]
